FAERS Safety Report 20579125 (Version 1)
Quarter: 2022Q1

REPORT INFORMATION
  Report Type: Spontaneous
  Country: US (occurrence: None)
  Receive Date: 20220310
  Receipt Date: 20220310
  Transmission Date: 20220423
  Serious: No
  Sender: FDA-Public Use
  Company Number: None

PATIENT
  Age: 70 Year
  Sex: Male
  Weight: 216 kg

DRUGS (1)
  1. CEFTRIAXONE SODIUM [Suspect]
     Active Substance: CEFTRIAXONE SODIUM
     Dosage: 2 GM EVERY DAY PO?
     Route: 048
     Dates: start: 20200518, end: 20200630

REACTIONS (6)
  - Renal tubular necrosis [None]
  - Fatigue [None]
  - Dyspnoea [None]
  - Hypovolaemia [None]
  - Gastrointestinal haemorrhage [None]
  - Hypersensitivity [None]

NARRATIVE: CASE EVENT DATE: 20200702
